FAERS Safety Report 9922298 (Version 2)
Quarter: 2014Q2

REPORT INFORMATION
  Report Type: Spontaneous
  Country: GB (occurrence: GB)
  Receive Date: 20140225
  Receipt Date: 20140527
  Transmission Date: 20141212
  Serious: Yes (Other)
  Sender: FDA-Public Use
  Company Number: GB-GLAXOSMITHKLINE-B0971226A

PATIENT
  Age: 47 Year
  Sex: Male
  Weight: 108 kg

DRUGS (3)
  1. LAMICTAL [Suspect]
     Indication: PETIT MAL EPILEPSY
     Dosage: 200MG PER DAY
     Route: 048
     Dates: start: 2012
  2. FLIXONASE [Concomitant]
  3. PREDNISOLONE [Concomitant]

REACTIONS (1)
  - Erectile dysfunction [Recovered/Resolved]
